APPROVED DRUG PRODUCT: TECHNESCAN HIDA
Active Ingredient: TECHNETIUM TC-99M LIDOFENIN KIT
Strength: N/A
Dosage Form/Route: INJECTABLE;INJECTION
Application: N018489 | Product #001
Applicant: DRAXIMAGE INC
Approved: Oct 31, 1986 | RLD: No | RS: No | Type: DISCN